FAERS Safety Report 15117350 (Version 1)
Quarter: 2018Q3

REPORT INFORMATION
  Report Type: Spontaneous
  Country: US (occurrence: US)
  Receive Date: 20180612
  Receipt Date: 20180612
  Transmission Date: 20181010
  Serious: No
  Sender: FDA-Public Use
  Company Number: None

PATIENT
  Age: 44 Year
  Sex: Female

DRUGS (1)
  1. H.P. ACTHAR [Suspect]
     Active Substance: CORTICOTROPIN
     Dates: start: 20180403, end: 20180612

REACTIONS (3)
  - Stomatitis [None]
  - Skin discolouration [None]
  - Fluid retention [None]

NARRATIVE: CASE EVENT DATE: 20180612
